FAERS Safety Report 12977718 (Version 1)
Quarter: 2016Q4

REPORT INFORMATION
  Report Type: Spontaneous
  Country: US (occurrence: US)
  Receive Date: 20161125
  Receipt Date: 20161125
  Transmission Date: 20170207
  Serious: Yes (Other)
  Sender: FDA-Public Use
  Company Number: None

PATIENT
  Age: 64 Year
  Sex: Female
  Weight: 85.05 kg

DRUGS (17)
  1. VITAMIN A [Concomitant]
     Active Substance: VITAMIN A
  2. LISINOPRIL. [Concomitant]
     Active Substance: LISINOPRIL
  3. CENTRUM SILVER [Concomitant]
     Active Substance: MINERALS\VITAMINS
  4. OSTEO BI-FLEX [Concomitant]
     Active Substance: CHONDROITIN SULFATE A\GLUCOSAMINE
  5. METFORMIN [Concomitant]
     Active Substance: METFORMIN HYDROCHLORIDE
  6. VITAMIN D [Concomitant]
     Active Substance: CHOLECALCIFEROL
  7. SLOW-MAG [Concomitant]
     Active Substance: MAGNESIUM CHLORIDE
  8. ACUITY AZ [Concomitant]
  9. COQ10 [Concomitant]
     Active Substance: UBIDECARENONE
  10. VITAMIN E [Concomitant]
     Active Substance: .ALPHA.-TOCOPHEROL
  11. TRULICITY [Suspect]
     Active Substance: DULAGLUTIDE
     Indication: TYPE 2 DIABETES MELLITUS
     Dosage: ?          OTHER FREQUENCY:ONCE A WEEK;OTHER ROUTE:SHOT?
  12. VITAMIN B12 [Concomitant]
     Active Substance: CYANOCOBALAMIN
  13. COLD WATER OMEGA-3 [Concomitant]
  14. TURMERIC [Concomitant]
     Active Substance: TURMERIC
  15. LOVASTATIN. [Concomitant]
     Active Substance: LOVASTATIN
  16. NUTRAVIEW [Concomitant]
  17. BAYER LOW DOSE [Concomitant]
     Active Substance: ASPIRIN

REACTIONS (1)
  - Alopecia [None]

NARRATIVE: CASE EVENT DATE: 20161001
